FAERS Safety Report 7163701-0 (Version None)
Quarter: 2010Q4

REPORT INFORMATION
  Report Type: 
  Country: None (occurrence: None)
  Receive Date: 20101215
  Receipt Date: 20100528
  Transmission Date: 20110411
  Serious: Yes (Other)
  Sender: FDA-Public Use
  Company Number: US-PFIZER INC-2010067857

PATIENT
  Sex: Male
  Weight: 65.76 kg

DRUGS (5)
  1. LYRICA [Interacting]
     Indication: NERVE INJURY
     Dosage: 50 MG, UNK
     Route: 048
     Dates: end: 20090301
  2. LYRICA [Interacting]
     Indication: LIMB INJURY
  3. PREDNISONE [Suspect]
     Indication: HYPERSENSITIVITY
     Dosage: UNK
     Dates: start: 20090301, end: 20090101
  4. AMITRIPTYLINE [Interacting]
     Dosage: UNK
     Dates: start: 20090212, end: 20090101
  5. TYLENOL (CAPLET) [Suspect]
     Dosage: UNK
     Dates: start: 20081215, end: 20080101

REACTIONS (17)
  - ASTIGMATISM [None]
  - BLINDNESS TRANSIENT [None]
  - COLOUR BLINDNESS [None]
  - DIZZINESS [None]
  - DRUG INEFFECTIVE [None]
  - DRUG INTERACTION [None]
  - DYSPNOEA [None]
  - EYE DISORDER [None]
  - EYE IRRITATION [None]
  - GINGIVAL INFECTION [None]
  - HEADACHE [None]
  - HYPERSENSITIVITY [None]
  - PHARYNGEAL OEDEMA [None]
  - RHINITIS [None]
  - SWELLING FACE [None]
  - VISION BLURRED [None]
  - VISUAL IMPAIRMENT [None]
